FAERS Safety Report 19135598 (Version 1)
Quarter: 2021Q2

REPORT INFORMATION
  Report Type: Report from Study
  Country: UA (occurrence: UA)
  Receive Date: 20210414
  Receipt Date: 20210414
  Transmission Date: 20210717
  Serious: Yes (Other)
  Sender: FDA-Public Use
  Company Number: UA-SEATTLE GENETICS-2021SGN02229

PATIENT
  Sex: Male

DRUGS (1)
  1. BRENTUXIMAB VEDOTIN?MPI [Suspect]
     Active Substance: BRENTUXIMAB VEDOTIN
     Indication: HODGKIN^S DISEASE
     Dosage: 131.4 MILLIGRAM
     Route: 065
     Dates: start: 20200324

REACTIONS (5)
  - Asthenia [Unknown]
  - Infection susceptibility increased [Unknown]
  - Breath sounds abnormal [Unknown]
  - Pyrexia [Unknown]
  - Arthritis [Unknown]
